FAERS Safety Report 7694391 (Version 5)
Quarter: 2021Q1

REPORT INFORMATION
  Report Type: Spontaneous
  Country: NZ (occurrence: NZ)
  Receive Date: 20101206
  Receipt Date: 20210222
  Transmission Date: 20210420
  Serious: Yes (Death)
  Sender: FDA-Public Use
  Company Number: NZ-MYLANLABS-2010S1021587

PATIENT
  Sex: Male

DRUGS (4)
  1. CAFERGOT                           /00060301/ [Concomitant]
     Indication: MIGRAINE
     Dosage: UNK UNK,PRN
     Route: 048
  2. FLUOXETINE MYLAN [Suspect]
     Active Substance: FLUOXETINE HYDROCHLORIDE
     Dosage: UNK
     Route: 048
     Dates: start: 20080305, end: 20080320
  3. PARAMAX                            /00020001/ [Concomitant]
     Active Substance: ACETAMINOPHEN
     Indication: MIGRAINE
     Dosage: UNK UNK,PRN
     Route: 048
  4. FLUOXETINE MYLAN [Suspect]
     Active Substance: FLUOXETINE HYDROCHLORIDE
     Indication: DEPRESSION
     Dosage: UNK
     Route: 048
     Dates: start: 20070112, end: 20070731

REACTIONS (11)
  - Intentional self-injury [Fatal]
  - Abnormal dreams [Fatal]
  - Akathisia [Fatal]
  - Sexual dysfunction [Fatal]
  - Completed suicide [Fatal]
  - Fatigue [Fatal]
  - Hallucination [Fatal]
  - Anger [Fatal]
  - Aggression [Fatal]
  - Amnesia [Fatal]
  - Disturbance in attention [Fatal]
